FAERS Safety Report 21403915 (Version 1)
Quarter: 2022Q4

REPORT INFORMATION
  Report Type: Spontaneous
  Country: US (occurrence: None)
  Receive Date: 20221003
  Receipt Date: 20221003
  Transmission Date: 20230113
  Serious: No
  Sender: FDA-Public Use
  Company Number: None

PATIENT
  Age: 50 Year
  Sex: Male

DRUGS (1)
  1. BEBTELOVIMAB [Suspect]
     Active Substance: BEBTELOVIMAB
     Indication: COVID-19
     Dosage: OTHER FREQUENCY : ONE TIME;?
     Route: 040
     Dates: start: 20221003, end: 20221003

REACTIONS (3)
  - Hot flush [None]
  - Paraesthesia [None]
  - Hypersensitivity [None]

NARRATIVE: CASE EVENT DATE: 20221003
